FAERS Safety Report 5204681-4 (Version None)
Quarter: 2007Q1

REPORT INFORMATION
  Report Type: 
  Country: None (occurrence: None)
  Receive Date: 20070110
  Receipt Date: 20060612
  Transmission Date: 20070707
  Serious: No
  Sender: FDA-Public Use
  Company Number: US-BRISTOL-MYERS SQUIBB COMPANY-13412226

PATIENT
  Age: 15 Year
  Sex: Female
  Weight: 57 kg

DRUGS (3)
  1. ABILIFY [Suspect]
     Indication: DEPRESSION
     Dates: start: 20060331, end: 20060101
  2. ZOLOFT [Concomitant]
  3. VITAMIN E [Concomitant]

REACTIONS (3)
  - COGWHEEL RIGIDITY [None]
  - DYSARTHRIA [None]
  - MUSCULOSKELETAL STIFFNESS [None]
